FAERS Safety Report 4294104-4 (Version None)
Quarter: 2004Q1

REPORT INFORMATION
  Report Type: 
  Country: None (occurrence: None)
  Receive Date: 20040211
  Receipt Date: 20040205
  Transmission Date: 20041129
  Serious: Yes (Life-Threatening, Hospitalization)
  Sender: FDA-Public Use
  Company Number: 2003UW16288

PATIENT
  Age: 70 Year
  Sex: Male
  Weight: 65 kg

DRUGS (6)
  1. SEROQUEL [Suspect]
     Indication: DEMENTIA
     Dosage: 25 MG DAILY; PO
     Route: 048
     Dates: start: 20030503, end: 20031201
  2. SEROQUEL [Suspect]
     Indication: HALLUCINATION
     Dosage: 25 MG DAILY; PO
     Route: 048
     Dates: start: 20030503, end: 20031201
  3. SEROQUEL [Suspect]
     Indication: SOMNOLENCE
     Dosage: 25 MG DAILY; PO
     Route: 048
     Dates: start: 20030503, end: 20031201
  4. DILTIAZEM [Concomitant]
  5. LIPITOR [Concomitant]
  6. LOSARTAN [Concomitant]

REACTIONS (2)
  - HYPOTENSION [None]
  - MYOCARDIAL INFARCTION [None]
